FAERS Safety Report 18255366 (Version 1)
Quarter: 2020Q3

REPORT INFORMATION
  Report Type: Other
  Country: CN (occurrence: CN)
  Receive Date: 20200910
  Receipt Date: 20200910
  Transmission Date: 20201103
  Serious: Yes (Life-Threatening)
  Sender: FDA-Public Use
  Company Number: CN-GE HEALTHCARE LIFE SCIENCES-2020CSU004074

PATIENT

DRUGS (2)
  1. OMNIPAQUE [Suspect]
     Active Substance: IOHEXOL
     Indication: PANCREATITIS ACUTE
  2. OMNIPAQUE [Suspect]
     Active Substance: IOHEXOL
     Indication: COMPUTERISED TOMOGRAM ABDOMEN
     Dosage: 80 ML, HIGH PRESSURE INJECTION, SINGLE
     Route: 042
     Dates: start: 20200818, end: 20200818

REACTIONS (5)
  - Blood pressure decreased [Recovering/Resolving]
  - Hyperhidrosis [Recovering/Resolving]
  - Glassy eyes [Recovering/Resolving]
  - Nausea [Recovering/Resolving]
  - Discomfort [Recovering/Resolving]

NARRATIVE: CASE EVENT DATE: 20200818
